FAERS Safety Report 4604830-2 (Version None)
Quarter: 2005Q1

REPORT INFORMATION
  Report Type: 
  Country: None (occurrence: None)
  Receive Date: 20050224
  Receipt Date: 20041214
  Transmission Date: 20050727
  Serious: Yes (Hospitalization)
  Sender: FDA-Public Use
  Company Number: 2004AP000921

PATIENT
  Age: 23 Year
  Sex: Male

DRUGS (1)
  1. PAROXETINE HYDROCHLORIDE [Suspect]
     Indication: DEPRESSION
     Dosage: 20 MG; ONCE

REACTIONS (4)
  - HEADACHE [None]
  - NAUSEA [None]
  - SEROTONIN SYNDROME [None]
  - VOMITING [None]
